FAERS Safety Report 4838479-3 (Version None)
Quarter: 2005Q4

REPORT INFORMATION
  Report Type: 
  Country: None (occurrence: None)
  Receive Date: 20051123
  Receipt Date: 20051115
  Transmission Date: 20060501
  Serious: Yes (Hospitalization)
  Sender: FDA-Public Use
  Company Number: 2005-04545

PATIENT
  Age: 24 Year
  Sex: Female

DRUGS (2)
  1. BACLOFEN [Suspect]
     Indication: NEUROFIBROMATOSIS
     Dosage: 10 MG, TID, ORAL
     Route: 048
  2. LORAZEPAM [Concomitant]

REACTIONS (4)
  - AUTONOMIC NERVOUS SYSTEM IMBALANCE [None]
  - DRUG WITHDRAWAL SYNDROME [None]
  - PYREXIA [None]
  - UNDERDOSE [None]
